FAERS Safety Report 4374143-5 (Version None)
Quarter: 2004Q2

REPORT INFORMATION
  Report Type: 
  Country: None (occurrence: None)
  Receive Date: 20040609
  Receipt Date: 20040603
  Transmission Date: 20050107
  Serious: Yes (Other)
  Sender: FDA-Public Use
  Company Number: 200415700GDDC

PATIENT
  Sex: Female

DRUGS (2)
  1. LANTUS [Suspect]
     Indication: DIABETES MELLITUS
     Dosage: DOSE: UNK
     Route: 058
  2. HUMALOG [Concomitant]
     Dosage: DOSE: UNK

REACTIONS (4)
  - ABASIA [None]
  - BALANCE DISORDER [None]
  - FEELING DRUNK [None]
  - NERVOUS SYSTEM DISORDER [None]
